FAERS Safety Report 6448415-4 (Version None)
Quarter: 2009Q4

REPORT INFORMATION
  Report Type: 
  Country: None (occurrence: None)
  Receive Date: 20091120
  Receipt Date: 20091110
  Transmission Date: 20100525
  Serious: Yes (Hospitalization)
  Sender: FDA-Public Use
  Company Number: PHEH2009US13741

PATIENT
  Sex: Female

DRUGS (1)
  1. EXJADE [Suspect]
     Dosage: 1500 MG, DAILY
     Route: 048

REACTIONS (4)
  - DIARRHOEA [None]
  - FALL [None]
  - IMMOBILE [None]
  - PELVIC FRACTURE [None]
